FAERS Safety Report 9106058 (Version 2)
Quarter: 2013Q2

REPORT INFORMATION
  Report Type: Spontaneous
  Country: US (occurrence: US)
  Receive Date: 20130221
  Receipt Date: 20130614
  Transmission Date: 20140414
  Serious: Yes (Death)
  Sender: FDA-Public Use
  Company Number: US-CELGENEUS-163-21660-13022300

PATIENT
  Age: 39 Year
  Sex: Male

DRUGS (1)
  1. ABRAXANE [Suspect]
     Indication: KERATINISING SQUAMOUS CELL CARCINOMA OF NASOPHARYNX
     Dosage: 191 MILLIGRAM
     Route: 041
     Dates: start: 201211, end: 201212

REACTIONS (1)
  - Keratinising squamous cell carcinoma of nasopharynx [Fatal]
